FAERS Safety Report 10919330 (Version 1)
Quarter: 2015Q1

REPORT INFORMATION
  Report Type: Spontaneous
  Country: US (occurrence: US)
  Receive Date: 20150316
  Receipt Date: 20150316
  Transmission Date: 20150721
  Serious: Yes (Other)
  Sender: FDA-Public Use
  Company Number: CHPA2014US014216

PATIENT
  Age: 67 Year
  Sex: Male

DRUGS (1)
  1. EX-LAX REGULAR STRENGTH CHOCOLATED STIMULANT LAXATIVE [Suspect]
     Active Substance: SENNOSIDES
     Indication: CONSTIPATION
     Dosage: 1 DF, UNK
     Route: 048
     Dates: start: 20141016, end: 20141016

REACTIONS (4)
  - Visual acuity reduced [Not Recovered/Not Resolved]
  - Pain [Not Recovered/Not Resolved]
  - Incorrect dose administered [Unknown]
  - Spinal cord injury [Unknown]

NARRATIVE: CASE EVENT DATE: 20141016
